FAERS Safety Report 5108649-8 (Version None)
Quarter: 2006Q3

REPORT INFORMATION
  Report Type: 
  Country: None (occurrence: None)
  Receive Date: 20060915
  Receipt Date: 20060905
  Transmission Date: 20061208
  Serious: Yes (Hospitalization)
  Sender: FDA-Public Use
  Company Number: E2020-00420-SPO-FR

PATIENT
  Age: 86 Year
  Sex: Female

DRUGS (7)
  1. ARICEPT [Suspect]
     Indication: DEMENTIA ALZHEIMER'S TYPE
     Dosage: SEE IMAGE
     Route: 048
  2. ALDACTAZINE (ALDACTAZINE) [Suspect]
     Indication: PULMONARY EMBOLISM
  3. PARACETAMOL, DEXTROPROPOXYPHENE (DIANTALVIC) (DI-GESIC) [Suspect]
     Indication: DRUG USE FOR UNKNOWN INDICATION
     Dosage: 6 TBS, ORAL
     Route: 048
     Dates: start: 20060612, end: 20060618
  4. DICLOFENAC SODIUM [Suspect]
     Indication: DRUG USE FOR UNKNOWN INDICATION
     Dosage: ORAL
     Route: 048
     Dates: start: 20060612, end: 20060618
  5. PAROXETINE HYDROCHLORIDE [Suspect]
     Indication: DEMENTIA ALZHEIMER'S TYPE
     Dosage: ORAL
     Route: 048
  6. PREVISCAN (FLUINDIONE) [Concomitant]
  7. ATHYMIL (MIANSERIN HYDROCHLORIDE) [Concomitant]

REACTIONS (4)
  - ANOREXIA [None]
  - ASTHENIA [None]
  - CONSTIPATION [None]
  - DIARRHOEA [None]
